FAERS Safety Report 9197619 (Version 1)
Quarter: 2013Q1

REPORT INFORMATION
  Report Type: Spontaneous
  Country: US (occurrence: US)
  Receive Date: 20130328
  Receipt Date: 20130328
  Transmission Date: 20140127
  Serious: Yes (Other)
  Sender: FDA-Public Use
  Company Number: US-BAYER-2013-035029

PATIENT
  Age: 38 Year
  Sex: Female
  Weight: 79.37 kg

DRUGS (4)
  1. YASMIN [Suspect]
  2. PROPRANOLOL [Concomitant]
     Dosage: 60 MG, QD
  3. CELEXA [Concomitant]
     Dosage: 20 MG, QHS
  4. INDERAL LA [Concomitant]

REACTIONS (2)
  - Deep vein thrombosis [None]
  - Thrombophlebitis superficial [None]
